FAERS Safety Report 16090342 (Version 1)
Quarter: 2019Q1

REPORT INFORMATION
  Report Type: Spontaneous
  Country: US (occurrence: US)
  Receive Date: 20190319
  Receipt Date: 20190319
  Transmission Date: 20190418
  Serious: Yes (Hospitalization)
  Sender: FDA-Public Use
  Company Number: US-AMGEN-USASP2019038994

PATIENT
  Age: 66 Year
  Sex: Male

DRUGS (1)
  1. REPATHA [Suspect]
     Active Substance: EVOLOCUMAB
     Indication: HYPERCHOLESTEROLAEMIA
     Dosage: UNK
     Route: 065
     Dates: start: 2017

REACTIONS (8)
  - Heart rate increased [Unknown]
  - Blood triglycerides abnormal [Unknown]
  - Fatigue [Unknown]
  - Blood pressure increased [Unknown]
  - Asthenia [Unknown]
  - Extrasystoles [Unknown]
  - Sinus tachycardia [Unknown]
  - High density lipoprotein decreased [Unknown]

NARRATIVE: CASE EVENT DATE: 2017
